FAERS Safety Report 8450911-5 (Version None)
Quarter: 2012Q2

REPORT INFORMATION
  Report Type: 
  Country: None (occurrence: None)
  Receive Date: 20120620
  Receipt Date: 20120612
  Transmission Date: 20120825
  Serious: Yes (Hospitalization, Other)
  Sender: FDA-Public Use
  Company Number: US-UCBSA-059519

PATIENT
  Sex: Female
  Weight: 73.48 kg

DRUGS (2)
  1. KEPPRA XR [Suspect]
     Dosage: 6 PILLS A DAY WAS SUGGESTED
  2. KEPPRA XR [Suspect]
     Indication: EPILEPSY
     Dosage: 4 TIMES A DAY OR EQUALLY A TOTAL OF 2000 MG
     Route: 048

REACTIONS (6)
  - MENTAL DISORDER [None]
  - CONVULSION [None]
  - INCORRECT DOSE ADMINISTERED [None]
  - DYSARTHRIA [None]
  - THINKING ABNORMAL [None]
  - AGGRESSION [None]
